FAERS Safety Report 10836658 (Version 1)
Quarter: 2015Q1

REPORT INFORMATION
  Report Type: Spontaneous
  Country: MA (occurrence: None)
  Receive Date: 20150218
  Receipt Date: 20150218
  Transmission Date: 20150721
  Serious: Yes (Death, Other)
  Sender: FDA-Public Use
  Company Number: MA-ZYDUS-006677

PATIENT
  Age: 39 Year
  Sex: Female

DRUGS (7)
  1. AZATHIOPRINE. [Suspect]
     Active Substance: AZATHIOPRINE
     Indication: CROHN^S DISEASE
  2. INFLIXIMAB (INFLIXIMAB) [Suspect]
     Active Substance: INFLIXIMAB
  3. PYRAZINAMIDE (PYRAZINAMIDE) [Concomitant]
     Active Substance: PYRAZINAMIDE
  4. CORTICOSTEROIDS [Suspect]
     Active Substance: CORTICOSTEROID NOS
     Indication: CROHN^S DISEASE
  5. RIFAMPICIN (RIFAMPICIN) [Suspect]
     Active Substance: RIFAMPIN
     Indication: TUBERCULOSIS
  6. ETHAMBUTOL [Suspect]
     Active Substance: ETHAMBUTOL HYDROCHLORIDE
     Indication: TUBERCULOSIS
  7. ISONIAZID (ISONIAZID) [Suspect]
     Active Substance: ISONIAZID
     Indication: TUBERCULOSIS

REACTIONS (3)
  - Disseminated tuberculosis [None]
  - General physical health deterioration [None]
  - Hepatitis toxic [None]
